FAERS Safety Report 23358578 (Version 1)
Quarter: 2024Q1

REPORT INFORMATION
  Report Type: Spontaneous
  Country: None (occurrence: FR)
  Receive Date: 20240102
  Receipt Date: 20240102
  Transmission Date: 20240410
  Serious: Yes (Other)
  Sender: FDA-Public Use
  Company Number: FR-B.Braun Medical Inc.-2150033

PATIENT
  Age: 64 Year
  Sex: Female
  Weight: 91 kg

DRUGS (4)
  1. ACETAMINOPHEN [Suspect]
     Active Substance: ACETAMINOPHEN
     Indication: Toxicity to various agents
     Route: 048
  2. BROMAZEPAM [Suspect]
     Active Substance: BROMAZEPAM
  3. LEVOTHYROXINE [Suspect]
     Active Substance: LEVOTHYROXINE
  4. ZOPICLONE [Suspect]
     Active Substance: ZOPICLONE

REACTIONS (6)
  - Analgesic drug level increased [None]
  - Toxicity to various agents [None]
  - Psychomotor skills impaired [None]
  - Sedation [None]
  - Drug ineffective for unapproved indication [None]
  - Overdose [None]
